FAERS Safety Report 14495167 (Version 5)
Quarter: 2018Q2

REPORT INFORMATION
  Report Type: Report from Study
  Country: US (occurrence: US)
  Receive Date: 20180206
  Receipt Date: 20180517
  Transmission Date: 20180711
  Serious: Yes (Hospitalization)
  Sender: FDA-Public Use
  Company Number: US-ACTELION-A-NJ2017-162544

PATIENT
  Age: 71 Year
  Sex: Female
  Weight: 102.4 kg

DRUGS (4)
  1. DILTIAZEM. [Concomitant]
     Active Substance: DILTIAZEM
  2. OPSUMIT [Suspect]
     Active Substance: MACITENTAN
     Indication: PULMONARY ARTERIAL HYPERTENSION
     Dosage: 10 MG, QD
     Route: 048
     Dates: start: 201709
  3. SILDENAFIL CITRATE. [Concomitant]
     Active Substance: SILDENAFIL CITRATE
  4. REMODULIN [Concomitant]
     Active Substance: TREPROSTINIL

REACTIONS (11)
  - Dyspnoea exertional [Unknown]
  - Headache [Unknown]
  - Dyspnoea [Unknown]
  - Device dislocation [Unknown]
  - Muscle spasms [Unknown]
  - Catheter management [Unknown]
  - Pain in jaw [Recovering/Resolving]
  - Hypotension [Unknown]
  - Device related infection [Unknown]
  - Fluid retention [Recovering/Resolving]
  - Malaise [Unknown]
